FAERS Safety Report 5694407-2 (Version None)
Quarter: 2008Q2

REPORT INFORMATION
  Report Type: 
  Country: None (occurrence: None)
  Receive Date: 20080403
  Receipt Date: 20080403
  Transmission Date: 20081010
  Serious: Yes (Hospitalization)
  Sender: FDA-Public Use
  Company Number: None

PATIENT
  Sex: Female
  Weight: 70.9 kg

DRUGS (2)
  1. FLUOROURACIL [Suspect]
     Dosage: 7480 MG
  2. MITOMYCIN [Suspect]
     Dosage: 19 MG

REACTIONS (2)
  - PAIN [None]
  - RADIATION SKIN INJURY [None]
